FAERS Safety Report 23969141 (Version 3)
Quarter: 2024Q2

REPORT INFORMATION
  Report Type: Spontaneous
  Country: BG (occurrence: BG)
  Receive Date: 20240612
  Receipt Date: 20240621
  Transmission Date: 20240715
  Serious: Yes (Hospitalization, Other)
  Sender: FDA-Public Use
  Company Number: BG-009507513-2406BGR002843

PATIENT
  Age: 71 Year
  Sex: Male

DRUGS (5)
  1. JANUMET [Suspect]
     Active Substance: METFORMIN HYDROCHLORIDE\SITAGLIPTIN PHOSPHATE
     Indication: Diabetes mellitus
     Dosage: 1 DOSAGE FORM, BID
     Route: 048
     Dates: start: 2016
  2. GLICLAZIDE [Suspect]
     Active Substance: GLICLAZIDE
     Indication: Diabetes mellitus
     Dosage: 30 MILLIGRAM, UNK
  3. THIOCTIC ACID [Suspect]
     Active Substance: THIOCTIC ACID
     Indication: Diabetes mellitus
     Dosage: 600 MILLIGRAM, QD
     Dates: start: 2023
  4. HERBALS [Suspect]
     Active Substance: HERBALS
     Dosage: 320 MILLIGRAM, QD IN THE MORNING
     Dates: start: 2023
  5. GLIMEPIRIDE [Suspect]
     Active Substance: GLIMEPIRIDE
     Indication: Diabetes mellitus
     Dosage: 2 MILLIGRAM, UNK
     Dates: start: 2016, end: 2023

REACTIONS (2)
  - Nodular melanoma [Unknown]
  - Product contamination [Unknown]
